FAERS Safety Report 17261147 (Version 1)
Quarter: 2020Q1

REPORT INFORMATION
  Report Type: Report from Study
  Country: DK (occurrence: DK)
  Receive Date: 20200113
  Receipt Date: 20200113
  Transmission Date: 20200409
  Serious: Yes (Hospitalization)
  Sender: FDA-Public Use
  Company Number: DK-SAMSUNG BIOEPIS-SB-2019-40729

PATIENT
  Age: 55 Year
  Sex: Female

DRUGS (3)
  1. BENEPALI [Suspect]
     Active Substance: ETANERCEPT
     Indication: RHEUMATOID ARTHRITIS
     Route: 058
     Dates: start: 20190104
  2. METEX (METHOTREXATE SODIUM) [Suspect]
     Active Substance: METHOTREXATE SODIUM
     Indication: RHEUMATOID ARTHRITIS
     Route: 058
     Dates: start: 20180504
  3. METHOTREXAT [Suspect]
     Active Substance: METHOTREXATE
     Indication: RHEUMATOID ARTHRITIS
     Route: 048
     Dates: start: 20180215, end: 20180428

REACTIONS (2)
  - Rectal cancer metastatic [Not Recovered/Not Resolved]
  - Cancer surgery [Recovered/Resolved]

NARRATIVE: CASE EVENT DATE: 20190816
